FAERS Safety Report 13400006 (Version 4)
Quarter: 2018Q1

REPORT INFORMATION
  Report Type: Report from Study
  Country: None (occurrence: CA)
  Receive Date: 20170404
  Receipt Date: 20180330
  Transmission Date: 20180508
  Serious: Yes (Hospitalization, Other)
  Sender: FDA-Public Use
  Company Number: CA-ABBVIE-17K-028-1931052-00

PATIENT
  Sex: Male
  Weight: 71 kg

DRUGS (2)
  1. HUMIRA [Suspect]
     Active Substance: ADALIMUMAB
     Indication: CROHN^S DISEASE
     Route: 058
     Dates: start: 20100311, end: 201703
  2. HUMIRA [Suspect]
     Active Substance: ADALIMUMAB
     Route: 058
     Dates: start: 2017

REACTIONS (8)
  - Functional gastrointestinal disorder [Recovering/Resolving]
  - Intestinal obstruction [Not Recovered/Not Resolved]
  - Hepatic neoplasm [Unknown]
  - Gastrointestinal infection [Not Recovered/Not Resolved]
  - Stress [Unknown]
  - Haematochezia [Not Recovered/Not Resolved]
  - Intestinal scarring [Unknown]
  - Pulmonary embolism [Unknown]

NARRATIVE: CASE EVENT DATE: 2016
